FAERS Safety Report 9037091 (Version 1)
Quarter: 2013Q1

REPORT INFORMATION
  Report Type: Spontaneous
  Country: US (occurrence: US)
  Receive Date: 20130129
  Receipt Date: 20130129
  Transmission Date: 20140127
  Serious: No
  Sender: FDA-Public Use
  Company Number: US-009507513-1301USA011091

PATIENT
  Age: 16 Year
  Sex: Female

DRUGS (1)
  1. NEXPLANON [Suspect]
     Indication: CONTRACEPTION
     Dosage: 68 MG, 3 YEAR
     Route: 059
     Dates: start: 20121211, end: 20130111

REACTIONS (3)
  - Depression [Unknown]
  - Mood altered [Unknown]
  - Menstruation irregular [Unknown]
